FAERS Safety Report 6196019-3 (Version None)
Quarter: 2009Q2

REPORT INFORMATION
  Report Type: 
  Country: None (occurrence: None)
  Receive Date: 20090520
  Receipt Date: 20041021
  Transmission Date: 20091009
  Serious: Yes (Hospitalization)
  Sender: FDA-Public Use
  Company Number: NL-ROCHE-600034

PATIENT
  Sex: Male

DRUGS (2)
  1. CAPECITABINE [Suspect]
     Route: 048
     Dates: start: 20041011, end: 20041015
  2. CAPECITABINE [Suspect]
     Route: 048
     Dates: start: 20041018

REACTIONS (1)
  - ANAL ABSCESS [None]
